FAERS Safety Report 7978220-9 (Version None)
Quarter: 2011Q4

REPORT INFORMATION
  Report Type: 
  Country: None (occurrence: None)
  Receive Date: 20111208
  Receipt Date: 20111128
  Transmission Date: 20120403
  Serious: Yes (Other)
  Sender: FDA-Public Use
  Company Number: WAES 1108FRA00100

PATIENT
  Age: 28 Year
  Sex: Male

DRUGS (5)
  1. EMTRICITABINE + TENOFOVIR DISOPROXIL FUM [Concomitant]
  2. MARAVIROC [Concomitant]
  3. RITONAVIR [Concomitant]
  4. TAB RALTEGRAVIR POTASSIUM [Suspect]
     Indication: HIV INFECTION
     Dosage: 400 MG/BID PO
     Route: 048
     Dates: start: 20110211
  5. DARUNAVIR [Concomitant]

REACTIONS (2)
  - ALCOHOLISM [None]
  - GAMMA-GLUTAMYLTRANSFERASE INCREASED [None]
